FAERS Safety Report 18563500 (Version 1)
Quarter: 2020Q4

REPORT INFORMATION
  Report Type: Spontaneous
  Country: AU (occurrence: AU)
  Receive Date: 20201201
  Receipt Date: 20201201
  Transmission Date: 20210114
  Serious: Yes (Other)
  Sender: FDA-Public Use
  Company Number: AU-BRISTOL-MYERS SQUIBB COMPANY-BMS-2020-100142

PATIENT
  Sex: Male

DRUGS (1)
  1. ELIQUIS [Suspect]
     Active Substance: APIXABAN
     Indication: HAEMORRHAGE
     Dosage: TAKING 5MG IN THE MORNING AND 2.5MG AT NIGHT
     Route: 065
     Dates: start: 202007

REACTIONS (3)
  - Intentional product use issue [Unknown]
  - Cardiac fibrillation [Unknown]
  - Dyspnoea [Unknown]
